FAERS Safety Report 10217319 (Version 1)
Quarter: 2014Q1

REPORT INFORMATION
  Report Type: Spontaneous
  Country: US (occurrence: None)
  Receive Date: 20140306
  Receipt Date: 20140306
  Transmission Date: 20141002
  Serious: Yes (Hospitalization, Disabling)
  Sender: FDA-Public Use
  Company Number: 163-21880-13044645

PATIENT
  Age: 64 Year
  Sex: Female
  Weight: 108.86 kg

DRUGS (22)
  1. REVLIMID [Suspect]
     Indication: PLASMA CELL MYELOMA
     Dosage: 25 MG, 14 IN 21 D, PO
     Route: 048
     Dates: start: 20130408, end: 20130502
  2. VELCADE (BORTEZOMIB) [Concomitant]
  3. DECADRON (DEXAMETHASONE) [Concomitant]
  4. ACYCLOVIR (ACICLOVIR) [Concomitant]
  5. BACTRIM DS (BACTRIM) [Concomitant]
  6. EPOETIN ALPHA (EPOETIN ALFA) [Concomitant]
  7. ONDANSETRON (ONDANSETRON) [Concomitant]
  8. ZOCOR (SIMVASTATIN) [Concomitant]
  9. PLAVIX (CLOPIDOGREL SULFATE) [Concomitant]
  10. DOXAZOSIN (DOXAZOSIN) [Concomitant]
  11. ISOSORBIDE MONONITRATE (ISOSORBIDE MONONITRATE) [Concomitant]
  12. LABETALOL (LABETALOL) [Concomitant]
  13. PEPCID (FAMOTIDINE) [Concomitant]
  14. ALBUTEROL (SALBUTAMOL) [Concomitant]
  15. AMLODIPINE (AMLODIPINE) [Concomitant]
  16. ASPIRIN (ACETYLSALICYLIC ACID) [Concomitant]
  17. ATORVASTATIN (ATORVASTATIN) [Concomitant]
  18. COZAAR (LOSARTAN POTASSIUM) [Concomitant]
  19. NOVOLOG (INSULIN ASPART) [Concomitant]
  20. LANTUS (INSULIN GLARGINE) [Concomitant]
  21. NITROGLYCERIN (GLYCERYL TRINITRATE) [Concomitant]
  22. JANUVIA (SITAGLIPTIN PHOSPHATE) [Concomitant]

REACTIONS (3)
  - Myocardial infarction [None]
  - Neuropathy peripheral [None]
  - Pain [None]
